FAERS Safety Report 15419660 (Version 1)
Quarter: 2018Q3

REPORT INFORMATION
  Report Type: Spontaneous
  Country: US (occurrence: US)
  Receive Date: 20180924
  Receipt Date: 20180924
  Transmission Date: 20181010
  Serious: Yes (Other)
  Sender: FDA-Public Use
  Company Number: US-LEXICON PHARMACEUTICALS, INC-18-1606-01161

PATIENT
  Age: 77 Year
  Sex: Male

DRUGS (28)
  1. CETIRIZINE [Concomitant]
     Active Substance: CETIRIZINE HYDROCHLORIDE
  2. JANUVIA [Concomitant]
     Active Substance: SITAGLIPTIN PHOSPHATE
  3. KLOR?CON [Concomitant]
     Active Substance: POTASSIUM CHLORIDE
  4. METOPROLOL TARTRATE. [Concomitant]
     Active Substance: METOPROLOL TARTRATE
  5. NITROSTAT [Concomitant]
     Active Substance: NITROGLYCERIN
  6. TELOTRISTAT ETHYL [Suspect]
     Active Substance: TELOTRISTAT ETHYL
     Indication: CARCINOID SYNDROME
     Route: 048
     Dates: start: 20171003
  7. BIOTIN [Concomitant]
     Active Substance: BIOTIN
  8. CALCIUM [Concomitant]
     Active Substance: CALCIUM
  9. FOLIC ACID. [Concomitant]
     Active Substance: FOLIC ACID
  10. PARICALCITOL. [Concomitant]
     Active Substance: PARICALCITOL
  11. SIMVASTATIN. [Concomitant]
     Active Substance: SIMVASTATIN
  12. ASCRIPTIN [Concomitant]
     Active Substance: ASPIRIN
  13. LOSARTAN. [Concomitant]
     Active Substance: LOSARTAN
  14. DIPHENHYDRAM [Concomitant]
  15. IRON [Concomitant]
     Active Substance: IRON
  16. DONEPEZIL. [Concomitant]
     Active Substance: DONEPEZIL
  17. BUMETANIDE. [Concomitant]
     Active Substance: BUMETANIDE
  18. COMBIVENT RESPIMAT [Concomitant]
     Active Substance: ALBUTEROL SULFATE\IPRATROPIUM BROMIDE
  19. FISH OIL [Concomitant]
     Active Substance: FISH OIL
  20. HYDROCODONE BITARTRATE. [Concomitant]
     Active Substance: HYDROCODONE BITARTRATE
  21. VITAMIN B12 [Concomitant]
     Active Substance: CYANOCOBALAMIN
  22. INSULIN CARTRIDGE [Concomitant]
  23. ISOSORBIDE MONONITRATE. [Concomitant]
     Active Substance: ISOSORBIDE MONONITRATE
  24. FLUTICASONE PROP [Concomitant]
     Active Substance: FLUTICASONE PROPIONATE
  25. NIASPAN [Concomitant]
     Active Substance: NIACIN
  26. VITAMIN D3 [Concomitant]
     Active Substance: CHOLECALCIFEROL
  27. TYLENOL [Concomitant]
     Active Substance: ACETAMINOPHEN
  28. VITAMIN C [Concomitant]
     Active Substance: ASCORBIC ACID

REACTIONS (3)
  - Ligament sprain [Unknown]
  - Off label use [Unknown]
  - Fall [Unknown]

NARRATIVE: CASE EVENT DATE: 20171003
